FAERS Safety Report 5576467-2 (Version None)
Quarter: 2007Q4

REPORT INFORMATION
  Report Type: 
  Country: None (occurrence: None)
  Receive Date: 20071228
  Receipt Date: 20071220
  Transmission Date: 20080405
  Serious: Yes (Death, Other)
  Sender: FDA-Public Use
  Company Number: US-ELI_LILLY_AND_COMPANY-US200712004232

PATIENT
  Age: 17 Year
  Sex: Male

DRUGS (1)
  1. ZYPREXA [Suspect]

REACTIONS (4)
  - CARDIAC DISORDER [None]
  - DRUG LEVEL INCREASED [None]
  - POST PROCEDURAL COMPLICATION [None]
  - SURGERY [None]
